FAERS Safety Report 14882755 (Version 1)
Quarter: 2018Q2

REPORT INFORMATION
  Report Type: Spontaneous
  Country: JP (occurrence: JP)
  Receive Date: 20180511
  Receipt Date: 20180511
  Transmission Date: 20180711
  Serious: Yes (Other)
  Sender: FDA-Public Use
  Company Number: JP-MYLANLABS-2018M1031073

PATIENT
  Age: 46 Year
  Sex: Male

DRUGS (5)
  1. DIAZEPAM. [Suspect]
     Active Substance: DIAZEPAM
     Indication: EPILEPSY
     Route: 042
  2. VALPROIC ACID. [Suspect]
     Active Substance: VALPROIC ACID
     Indication: EPILEPSY
     Route: 048
  3. ARGATROBAN. [Suspect]
     Active Substance: ARGATROBAN
     Indication: HEMIPARESIS
     Route: 065
  4. FOSPHENYTOIN [Suspect]
     Active Substance: FOSPHENYTOIN\FOSPHENYTOIN SODIUM
     Indication: EPILEPSY
     Route: 042
  5. EDAROVONE [Suspect]
     Active Substance: EDARAVONE
     Indication: HEMIPARESIS
     Route: 065

REACTIONS (2)
  - Acute kidney injury [Recovering/Resolving]
  - Dialysis [None]
